FAERS Safety Report 9904742 (Version 2)
Quarter: 2014Q4

REPORT INFORMATION
  Report Type: Report from Study
  Country: JP (occurrence: JP)
  Receive Date: 20140218
  Receipt Date: 20141230
  Transmission Date: 20150529
  Serious: Yes (Death, Other)
  Sender: FDA-Public Use
  Company Number: JP-SA-2014SA018451

PATIENT
  Age: 49 Year
  Sex: Male
  Weight: 61.4 kg

DRUGS (10)
  1. THYMOGLOBULINE [Suspect]
     Active Substance: LAPINE T-LYMPHOCYTE IMMUNE GLOBULIN
     Indication: BONE MARROW CONDITIONING REGIMEN
     Route: 042
     Dates: start: 20120622, end: 20120625
  2. SULFAMETHOXAZOLE AND TRIMETHOPRIM [Concomitant]
     Active Substance: SULFAMETHOXAZOLE\TRIMETHOPRIM
     Indication: INFECTION PROPHYLAXIS
     Route: 065
     Dates: end: 20120625
  3. THERAPEUTIC RADIOPHARMACEUTICALS [Suspect]
     Active Substance: RADIATION THERAPY
     Indication: BONE MARROW CONDITIONING REGIMEN
     Route: 065
  4. LANSOPRAZOLE. [Concomitant]
     Active Substance: LANSOPRAZOLE
     Indication: PROPHYLAXIS
     Route: 065
     Dates: end: 20120706
  5. FUNGUARD [Concomitant]
     Active Substance: MICAFUNGIN SODIUM
     Indication: INFECTION PROPHYLAXIS
     Route: 065
     Dates: start: 20120620, end: 20120706
  6. SOL-MELCORT [Concomitant]
     Active Substance: METHYLPREDNISOLONE SODIUM SUCCINATE
     Indication: CYTOKINE RELEASE SYNDROME
     Route: 065
     Dates: start: 20120622, end: 20120625
  7. FLUDARA [Suspect]
     Active Substance: FLUDARABINE PHOSPHATE
     Indication: BONE MARROW CONDITIONING REGIMEN
     Route: 065
     Dates: start: 20120620, end: 20120625
  8. CRAVIT [Concomitant]
     Active Substance: LEVOFLOXACIN
     Indication: INFECTION PROPHYLAXIS
     Route: 065
     Dates: start: 20120620, end: 20120704
  9. ACYCLOVIR. [Concomitant]
     Active Substance: ACYCLOVIR
     Indication: INFECTION PROPHYLAXIS
     Route: 065
     Dates: start: 20120620, end: 20120706
  10. DEPAKENE [Concomitant]
     Active Substance: VALPROIC ACID
     Indication: CONVULSION PROPHYLAXIS
     Route: 065
     Dates: start: 20120619, end: 20120622

REACTIONS (5)
  - Cholecystitis [Not Recovered/Not Resolved]
  - Toxoplasmosis [Fatal]
  - Bronchopulmonary aspergillosis [Not Recovered/Not Resolved]
  - Pyrexia [Recovering/Resolving]
  - Stomatitis [Recovering/Resolving]

NARRATIVE: CASE EVENT DATE: 20120622
